FAERS Safety Report 14138826 (Version 5)
Quarter: 2018Q1

REPORT INFORMATION
  Report Type: Spontaneous
  Country: KR (occurrence: KR)
  Receive Date: 20171027
  Receipt Date: 20180221
  Transmission Date: 20180508
  Serious: Yes (Death, Other)
  Sender: FDA-Public Use
  Company Number: KR-CELGENEUS-KOR-20171006198

PATIENT
  Sex: Male

DRUGS (18)
  1. DIFLUCAN [Concomitant]
     Active Substance: FLUCONAZOLE
     Indication: STOMATITIS
     Dosage: 100 MILLIGRAM
     Route: 048
     Dates: start: 20171010, end: 20171012
  2. ATROVENT [Concomitant]
     Active Substance: IPRATROPIUM BROMIDE
     Indication: DYSPNOEA
     Dosage: 8 MILLILITER
     Route: 055
     Dates: start: 20171011, end: 20171017
  3. REVLIMID [Suspect]
     Active Substance: LENALIDOMIDE
     Indication: PRODUCT USED FOR UNKNOWN INDICATION
     Dosage: 10 MILLIGRAM
     Route: 048
     Dates: start: 20171014, end: 20171016
  4. TANTUM SOLN [Concomitant]
     Indication: STOMATITIS
     Route: 048
     Dates: start: 20171010, end: 20171017
  5. FOLIC ACID. [Concomitant]
     Active Substance: FOLIC ACID
     Indication: SUPPLEMENTATION THERAPY
     Dosage: 1 MILLIGRAM
     Route: 048
     Dates: end: 20171015
  6. TARGOCID [Concomitant]
     Active Substance: TEICOPLANIN
     Indication: PNEUMONIA
     Dosage: 800 MILLIGRAM
     Route: 041
     Dates: start: 20171011, end: 20171017
  7. GABATIN [Concomitant]
     Indication: NEUROPATHY PERIPHERAL
     Dosage: 200 MILLIGRAM
     Route: 048
     Dates: end: 20171015
  8. TRIDOL [Concomitant]
     Active Substance: TRAMADOL HYDROCHLORIDE
     Indication: BONE PAIN
     Dosage: 150 MILLIGRAM
     Route: 048
     Dates: start: 20171006, end: 20171015
  9. SEPTRIN [Concomitant]
     Active Substance: SULFAMETHOXAZOLE\TRIMETHOPRIM
     Indication: PROPHYLAXIS
     Dosage: 480 MILLIGRAM
     Route: 048
     Dates: start: 20171015, end: 20171016
  10. VENTOLIN [Concomitant]
     Active Substance: ALBUTEROL SULFATE
     Indication: DYSPNOEA
     Dosage: 10 MILLILITER
     Route: 055
     Dates: start: 20171011, end: 20171017
  11. NYSTATIN. [Concomitant]
     Active Substance: NYSTATIN
     Indication: STOMATITIS
     Dosage: 15 MILLILITER
     Route: 048
     Dates: start: 20171010, end: 20171016
  12. MEROPENEM. [Concomitant]
     Active Substance: MEROPENEM
     Indication: PNEUMONIA
     Dosage: 2000 MILLIGRAM
     Route: 041
     Dates: start: 20170925, end: 20171011
  13. COTRIM [Concomitant]
     Active Substance: SULFAMETHOXAZOLE\TRIMETHOPRIM
     Indication: PNEUMONIA
     Dosage: 60 MILLILITER
     Route: 041
     Dates: start: 20170928, end: 20171015
  14. PANTOLINE [Concomitant]
     Active Substance: PANTOPRAZOLE SODIUM
     Indication: PROPHYLAXIS AGAINST GASTROINTESTINAL ULCER
     Dosage: 20 MILLIGRAM
     Route: 048
     Dates: end: 20171013
  15. MEGACE [Concomitant]
     Active Substance: MEGESTROL ACETATE
     Indication: PROPHYLAXIS
     Dosage: 120 MILLIGRAM
     Route: 048
     Dates: start: 20170924, end: 20171015
  16. ENAFON [Concomitant]
     Indication: NEUROPATHY PERIPHERAL
     Dosage: 10 MILLIGRAM
     Route: 048
     Dates: end: 20171015
  17. DULCOLAX NOS [Concomitant]
     Active Substance: BISACODYL OR DOCUSATE SODIUM
     Indication: CONSTIPATION
     Dosage: 10 MILLIGRAM
     Route: 054
     Dates: start: 20171012, end: 20171017
  18. COMBIFLEX PERI [Concomitant]
     Indication: DECREASED APPETITE
     Dosage: 1100 MILLIGRAM
     Route: 041
     Dates: start: 20171012, end: 20171016

REACTIONS (1)
  - Respiratory failure [Fatal]
